FAERS Safety Report 4444841-3 (Version None)
Quarter: 2004Q3

REPORT INFORMATION
  Report Type: 
  Country: None (occurrence: None)
  Receive Date: 20040907
  Receipt Date: 20040907
  Transmission Date: 20050211
  Serious: Yes (Life-Threatening, Hospitalization)
  Sender: FDA-Public Use
  Company Number: None

PATIENT
  Age: 59 Year
  Sex: Female
  Weight: 91.4 kg

DRUGS (2)
  1. TAXOL [Suspect]
     Indication: OVARIAN CANCER
     Dosage: 340 MG IVPB OVER 3 HRS
     Dates: start: 20040817
  2. CARBOPLATIN [Suspect]
     Indication: OVARIAN CANCER
     Dosage: 550 MG IVPB OVER 30 MINS
     Dates: start: 20040817

REACTIONS (4)
  - BODY TEMPERATURE INCREASED [None]
  - FALL [None]
  - TREMOR [None]
  - VOMITING [None]
